FAERS Safety Report 6890017-X (Version None)
Quarter: 2010Q3

REPORT INFORMATION
  Report Type: 
  Country: None (occurrence: None)
  Receive Date: 20100730
  Receipt Date: 20080703
  Transmission Date: 20110219
  Serious: No
  Sender: FDA-Public Use
  Company Number: US-PFIZER INC-2008035405

PATIENT
  Sex: Female
  Weight: 80.909 kg

DRUGS (9)
  1. LIPITOR [Suspect]
  2. ATENOLOL [Concomitant]
  3. GLIPIZIDE [Concomitant]
  4. FOSINOPRIL SODIUM [Concomitant]
  5. FUROSEMIDE [Concomitant]
  6. AMLODIPINE [Concomitant]
  7. OMEPRAZOLE [Concomitant]
  8. ACETAMINOPHEN [Concomitant]
     Indication: ARTHRITIS
  9. VITAMINS [Concomitant]

REACTIONS (1)
  - OSTEOARTHRITIS [None]
